FAERS Safety Report 25240198 (Version 1)
Quarter: 2025Q2

REPORT INFORMATION
  Report Type: Spontaneous
  Country: HU (occurrence: HU)
  Receive Date: 20250425
  Receipt Date: 20250425
  Transmission Date: 20250716
  Serious: Yes (Other)
  Sender: PFIZER
  Company Number: HU-ROCHE-10000254921

PATIENT
  Sex: Female

DRUGS (1)
  1. RITUXIMAB [Suspect]
     Active Substance: RITUXIMAB

REACTIONS (5)
  - Body temperature increased [Unknown]
  - Heart rate increased [Unknown]
  - Drug hypersensitivity [Unknown]
  - Rash [Unknown]
  - Pruritus [Unknown]
